FAERS Safety Report 17273491 (Version 1)
Quarter: 2020Q1

REPORT INFORMATION
  Report Type: Spontaneous
  Country: US (occurrence: US)
  Receive Date: 20200103
  Receipt Date: 20200103
  Transmission Date: 20200409
  Serious: Yes (Other)
  Sender: FDA-Public Use
  Company Number: None

PATIENT
  Age: 72 Year
  Sex: Female

DRUGS (4)
  1. SEPTRA [Concomitant]
     Active Substance: SULFAMETHOXAZOLE\TRIMETHOPRIM
  2. ELIQUIS [Concomitant]
     Active Substance: APIXABAN
  3. EUCRISA [Suspect]
     Active Substance: CRISABOROLE
     Indication: DERMATITIS ATOPIC
     Route: 061
     Dates: start: 20190626, end: 20190627
  4. RIFAMPIN. [Concomitant]
     Active Substance: RIFAMPIN

REACTIONS (7)
  - Tonsillar hypertrophy [None]
  - Pharyngitis [None]
  - Upper respiratory tract infection [None]
  - Swelling [None]
  - Swollen tongue [None]
  - Swelling face [None]
  - Wheezing [None]

NARRATIVE: CASE EVENT DATE: 20190626
